FAERS Safety Report 6768837-1 (Version None)
Quarter: 2010Q2

REPORT INFORMATION
  Report Type: 
  Country: None (occurrence: None)
  Receive Date: 20100611
  Receipt Date: 20100601
  Transmission Date: 20101027
  Serious: Yes (Hospitalization)
  Sender: FDA-Public Use
  Company Number: DSA_43235_2010

PATIENT
  Age: 77 Year
  Sex: Male

DRUGS (3)
  1. MONO-TILDIEM (MONO-TILDIEM) 300 MG (NOT SPECIFIED) [Suspect]
     Indication: DRUG USE FOR UNKNOWN INDICATION
     Dosage: (300 MG QD ORAL)
     Route: 048
     Dates: end: 20091119
  2. KARDEGIC [Concomitant]
  3. COVERSYL [Concomitant]

REACTIONS (7)
  - ATRIAL FIBRILLATION [None]
  - BRADYCARDIA [None]
  - FALL [None]
  - MALNUTRITION [None]
  - RHABDOMYOLYSIS [None]
  - SOCIAL PROBLEM [None]
  - VENOUS INSUFFICIENCY [None]
